FAERS Safety Report 4456216-1 (Version None)
Quarter: 2004Q3

REPORT INFORMATION
  Report Type: 
  Country: None (occurrence: None)
  Receive Date: 20040920
  Receipt Date: 20040906
  Transmission Date: 20050211
  Serious: Yes (Life-Threatening, Hospitalization)
  Sender: FDA-Public Use
  Company Number: 04P-107-0270535-00

PATIENT
  Age: 55 Year
  Sex: Female
  Weight: 69 kg

DRUGS (2)
  1. HUMIRA [Suspect]
     Indication: RHEUMATOID ARTHRITIS
     Dosage: 1 IN 2 WK SUBCUTANEOUS
     Route: 058
     Dates: start: 20040209, end: 20040724
  2. METHOTREXATE [Concomitant]

REACTIONS (26)
  - ALPHA HAEMOLYTIC STREPTOCOCCAL INFECTION [None]
  - ASCITES [None]
  - CANDIDIASIS [None]
  - CHOLELITHIASIS [None]
  - CSF TEST ABNORMAL [None]
  - DISSEMINATED TUBERCULOSIS [None]
  - DRY THROAT [None]
  - DYSURIA [None]
  - ENCEPHALOPATHY [None]
  - ESCHERICHIA INFECTION [None]
  - GALLBLADDER DISORDER [None]
  - HEART RATE INCREASED [None]
  - HYDROCEPHALUS [None]
  - HYPOREFLEXIA [None]
  - INTESTINAL HYPOMOTILITY [None]
  - LYMPHOCYTE PERCENTAGE INCREASED [None]
  - NEUTROPHIL PERCENTAGE DECREASED [None]
  - NYSTAGMUS [None]
  - ODYNOPHAGIA [None]
  - PAIN [None]
  - PALLOR [None]
  - PLEURAL EFFUSION [None]
  - PROTEIN TOTAL DECREASED [None]
  - RESPIRATORY DISTRESS [None]
  - RESPIRATORY RATE INCREASED [None]
  - TONSILLAR ULCER [None]
